FAERS Safety Report 16731300 (Version 1)
Quarter: 2019Q3

REPORT INFORMATION
  Report Type: Spontaneous
  Country: US (occurrence: US)
  Receive Date: 20190822
  Receipt Date: 20190822
  Transmission Date: 20191005
  Serious: No
  Sender: FDA-Public Use
  Company Number: US-GLAXOSMITHKLINE-US2019149206

PATIENT
  Age: 42 Year
  Sex: Female

DRUGS (2)
  1. ALLI [Suspect]
     Active Substance: ORLISTAT
     Indication: WEIGHT LOSS DIET
     Dosage: UNK, QD (3 CAPSULES)
     Route: 048
  2. ALLI [Suspect]
     Active Substance: ORLISTAT
     Dosage: UNK
     Route: 048
     Dates: start: 20190812

REACTIONS (2)
  - Flatulence [Unknown]
  - Steatorrhoea [Unknown]

NARRATIVE: CASE EVENT DATE: 20190812
